FAERS Safety Report 25979168 (Version 1)
Quarter: 2025Q4

REPORT INFORMATION
  Report Type: Spontaneous
  Country: US (occurrence: None)
  Receive Date: 20251030
  Receipt Date: 20251030
  Transmission Date: 20260119
  Serious: Yes (Hospitalization)
  Sender: FDA-CTU
  Company Number: None

PATIENT
  Age: 49 Year
  Sex: Female
  Weight: 77.3 kg

DRUGS (1)
  1. LUTETIUM OXODOTREOTIDE LU-177 [Suspect]
     Active Substance: LUTETIUM OXODOTREOTIDE LU-177
     Indication: Clinical trial participant
     Dates: start: 20250207, end: 20250801

REACTIONS (5)
  - Abdominal pain [None]
  - Diarrhoea [None]
  - Gastrointestinal wall thickening [None]
  - Intestinal obstruction [None]
  - Enteritis [None]

NARRATIVE: CASE EVENT DATE: 20250917
